FAERS Safety Report 13099224 (Version 3)
Quarter: 2017Q1

REPORT INFORMATION
  Report Type: Spontaneous
  Country: NL (occurrence: NL)
  Receive Date: 20170109
  Receipt Date: 20170207
  Transmission Date: 20170428
  Serious: Yes (Disabling)
  Sender: FDA-Public Use
  Company Number: NL-GILEAD-2016-0247807

PATIENT
  Age: 58 Year
  Sex: Male
  Weight: 68 kg

DRUGS (3)
  1. GENVOYA [Suspect]
     Active Substance: COBICISTAT\ELVITEGRAVIR\EMTRICITABINE\TENOFOVIR ALAFENAMIDE FUMARATE
     Indication: PRODUCT USED FOR UNKNOWN INDICATION
     Dosage: 1 DF, QD
     Route: 065
     Dates: start: 20160809, end: 20161012
  2. MACROGOL [Concomitant]
     Active Substance: POLYETHYLENE GLYCOLS
     Dosage: 10 MG, UNK
     Dates: start: 20160823
  3. SILDENAFIL. [Concomitant]
     Active Substance: SILDENAFIL
     Dosage: 250 MG, PRN
     Dates: start: 20140521

REACTIONS (9)
  - Pyrexia [Recovered/Resolved]
  - Arthropathy [Unknown]
  - Joint stiffness [Recovered/Resolved]
  - Headache [Recovered/Resolved]
  - Back pain [Recovered/Resolved]
  - Musculoskeletal stiffness [Recovered/Resolved]
  - Arthralgia [Recovered/Resolved]
  - Pelvic discomfort [Unknown]
  - Sleep disorder [Recovered/Resolved]

NARRATIVE: CASE EVENT DATE: 2016
